FAERS Safety Report 6182051-2 (Version None)
Quarter: 2009Q2

REPORT INFORMATION
  Report Type: 
  Country: None (occurrence: None)
  Receive Date: 20090507
  Receipt Date: 20090428
  Transmission Date: 20091009
  Serious: Yes (Other)
  Sender: FDA-Public Use
  Company Number: AU-ABBOTT-08P-008-0469002-00

PATIENT
  Sex: Male
  Weight: 70 kg

DRUGS (10)
  1. HUMIRA [Suspect]
     Indication: RHEUMATOID ARTHRITIS
     Dates: start: 20060201, end: 20080501
  2. METHOTREXATE [Concomitant]
     Indication: RHEUMATOID ARTHRITIS
  3. PREDNISONE [Concomitant]
     Indication: RHEUMATOID ARTHRITIS
  4. HYDROXYCHLOROQUINE SULFATE [Concomitant]
     Indication: RHEUMATOID ARTHRITIS
     Dosage: LONGSTANDING
  5. FOLIC ACID [Concomitant]
     Indication: RHEUMATOID ARTHRITIS
  6. ATENOLOL [Concomitant]
     Indication: DRUG USE FOR UNKNOWN INDICATION
  7. LIPITOR [Concomitant]
     Indication: DRUG USE FOR UNKNOWN INDICATION
  8. FELODUR [Concomitant]
     Indication: DRUG USE FOR UNKNOWN INDICATION
  9. COVERSYL PLUS [Concomitant]
     Indication: DRUG USE FOR UNKNOWN INDICATION
  10. CARTIA XT [Concomitant]
     Indication: DRUG USE FOR UNKNOWN INDICATION

REACTIONS (10)
  - MALAISE [None]
  - MYCOBACTERIAL INFECTION [None]
  - NODULE ON EXTREMITY [None]
  - OEDEMA PERIPHERAL [None]
  - PAIN [None]
  - PAIN IN EXTREMITY [None]
  - RASH PUSTULAR [None]
  - RHEUMATOID ARTHRITIS [None]
  - SKIN LESION [None]
  - SKIN ULCER [None]
